FAERS Safety Report 18678450 (Version 1)
Quarter: 2020Q4

REPORT INFORMATION
  Report Type: Report from Study
  Country: US (occurrence: US)
  Receive Date: 20201229
  Receipt Date: 20201229
  Transmission Date: 20210114
  Serious: Yes (Other)
  Sender: FDA-Public Use
  Company Number: US-CLOVIS ONCOLOGY-CLO-2020-001066

PATIENT
  Sex: Female

DRUGS (2)
  1. RUBRACA [Suspect]
     Active Substance: RUCAPARIB CAMSYLATE
     Indication: OVARIAN CANCER
     Dosage: 400 MG IN EVENING, 500 MG MORNING
     Route: 048
     Dates: start: 202005, end: 2020
  2. RUBRACA [Suspect]
     Active Substance: RUCAPARIB CAMSYLATE
     Indication: ILLNESS
     Dosage: 500 MG, BID
     Route: 048
     Dates: start: 20200529

REACTIONS (4)
  - Abdominal pain [Unknown]
  - Fatigue [Unknown]
  - Nausea [Unknown]
  - Disease progression [Unknown]

NARRATIVE: CASE EVENT DATE: 2020
